FAERS Safety Report 11269626 (Version 1)
Quarter: 2015Q3

REPORT INFORMATION
  Report Type: Spontaneous
  Country: US (occurrence: US)
  Receive Date: 20150714
  Receipt Date: 20150714
  Transmission Date: 20151125
  Serious: Yes (Death, Hospitalization, Other)
  Sender: FDA-Public Use
  Company Number: US-ACTAVIS-2013-26858

PATIENT
  Age: 80 Year
  Sex: Female

DRUGS (2)
  1. MESALAZINE (UNKNOWN) [Suspect]
     Active Substance: MESALAMINE
     Indication: COLITIS
     Dosage: UNK
     Route: 065
  2. PREDNISONE. [Suspect]
     Active Substance: PREDNISONE
     Indication: COLITIS
     Dosage: UNK
     Route: 065

REACTIONS (10)
  - Respiratory failure [Fatal]
  - Weight decreased [Unknown]
  - Enteropathy-associated T-cell lymphoma [Fatal]
  - Asthenia [Unknown]
  - Diarrhoea [Unknown]
  - Nausea [Unknown]
  - Early satiety [Unknown]
  - Cardiac arrest [Fatal]
  - Septic shock [Fatal]
  - Fatigue [Unknown]
